FAERS Safety Report 8442778-6 (Version None)
Quarter: 2012Q2

REPORT INFORMATION
  Report Type: 
  Country: None (occurrence: None)
  Receive Date: 20120615
  Receipt Date: 20120604
  Transmission Date: 20120825
  Serious: Yes (Death, Hospitalization)
  Sender: FDA-Public Use
  Company Number: JP-ROCHE-1047164

PATIENT
  Sex: Male
  Weight: 55 kg

DRUGS (19)
  1. ACTEMRA [Suspect]
     Route: 041
     Dates: start: 20090313, end: 20090313
  2. DIOVAN [Concomitant]
     Indication: HYPERTENSION
     Route: 048
     Dates: end: 20090103
  3. ACTEMRA [Suspect]
     Route: 041
     Dates: start: 20090410, end: 20090410
  4. ACTEMRA [Suspect]
     Route: 041
     Dates: start: 20100628
  5. BASEN [Concomitant]
     Indication: DIABETES MELLITUS
     Route: 048
  6. ALOSENN [Concomitant]
     Indication: CONSTIPATION
     Dosage: TAKEN AS NEEDED : 0.5G/DAY
     Route: 048
  7. PLAVIX [Concomitant]
     Route: 048
  8. LASIX [Concomitant]
     Indication: HYPERTENSION
     Route: 048
  9. RABEPRAZOLE SODIUM [Concomitant]
     Indication: PROPHYLAXIS
     Route: 048
     Dates: start: 20081120
  10. PURSENNID [Concomitant]
     Indication: CONSTIPATION
     Dosage: TAKEN AS NEEDED : 12MG/DAY
     Route: 048
  11. DORAL [Concomitant]
     Indication: INSOMNIA
     Route: 048
  12. ACTEMRA [Suspect]
     Route: 041
     Dates: start: 20090213, end: 20090213
  13. LOXONIN [Concomitant]
     Indication: RHEUMATOID ARTHRITIS
     Route: 048
     Dates: start: 20081120
  14. ACTEMRA [Suspect]
     Indication: RHEUMATOID ARTHRITIS
     Route: 041
     Dates: start: 20081217, end: 20081217
  15. ACTEMRA [Suspect]
     Route: 041
     Dates: start: 20090114, end: 20090114
  16. PREDNISOLONE [Concomitant]
     Indication: RHEUMATOID ARTHRITIS
     Route: 048
     Dates: start: 20081120, end: 20090428
  17. PREDNISOLONE [Concomitant]
     Route: 048
     Dates: start: 20090429
  18. ASPIRIN [Concomitant]
     Route: 048
  19. LENDORMIN D [Concomitant]
     Indication: INSOMNIA
     Dosage: TAKEN AS NEEDED : 0.25MG/DAY
     Route: 048

REACTIONS (4)
  - FOOT AMPUTATION [None]
  - ARTHRALGIA [None]
  - SUDDEN DEATH [None]
  - PERIPHERAL ARTERIAL OCCLUSIVE DISEASE [None]
